FAERS Safety Report 5293864-3 (Version None)
Quarter: 2007Q2

REPORT INFORMATION
  Report Type: 
  Country: None (occurrence: None)
  Receive Date: 20070411
  Receipt Date: 20070405
  Transmission Date: 20071010
  Serious: Yes (Hospitalization, Other)
  Sender: FDA-Public Use
  Company Number: US-MERCK-0704USA00929

PATIENT
  Age: 30 Year
  Sex: Female

DRUGS (3)
  1. SIMVASTATIN [Suspect]
     Route: 048
     Dates: start: 20061001, end: 20061001
  2. RAPTIVA [Concomitant]
     Route: 048
  3. WELLBUTRIN [Concomitant]
     Route: 048

REACTIONS (2)
  - DRUG DISPENSING ERROR [None]
  - SYSTEMIC LUPUS ERYTHEMATOSUS [None]
